FAERS Safety Report 15820327 (Version 3)
Quarter: 2019Q1

REPORT INFORMATION
  Report Type: Report from Study
  Country: US (occurrence: US)
  Receive Date: 20190114
  Receipt Date: 20190320
  Transmission Date: 20190417
  Serious: No
  Sender: FDA-Public Use
  Company Number: PHEH2019US001159

PATIENT
  Sex: Male

DRUGS (1)
  1. COSENTYX [Suspect]
     Active Substance: SECUKINUMAB
     Indication: PSORIASIS
     Dosage: 300 MG, Q4W (ONCE EVERY 4 WEEKS)
     Route: 058
     Dates: start: 20181114

REACTIONS (2)
  - Drug ineffective [Unknown]
  - Psoriasis [Not Recovered/Not Resolved]
